FAERS Safety Report 9509885 (Version 1)
Quarter: 2013Q3

REPORT INFORMATION
  Report Type: Spontaneous
  Country: US (occurrence: US)
  Receive Date: 20130909
  Receipt Date: 20130909
  Transmission Date: 20140515
  Serious: No
  Sender: FDA-Public Use
  Company Number: US-BRISTOL-MYERS SQUIBB COMPANY-18831909

PATIENT
  Age: 66 Year
  Sex: Female
  Weight: 122.45 kg

DRUGS (2)
  1. ABILIFY TABS 5 MG [Suspect]
     Indication: DEPRESSION
     Dosage: TOOK 5 MG: 2 WEEKS, 2.5 MG TILL 18APR2013
     Dates: end: 20130418
  2. CELEXA [Concomitant]

REACTIONS (1)
  - Fatigue [Recovering/Resolving]
